FAERS Safety Report 5057584-2 (Version None)
Quarter: 2006Q3

REPORT INFORMATION
  Report Type: 
  Country: None (occurrence: None)
  Receive Date: 20060721
  Receipt Date: 20051208
  Transmission Date: 20061208
  Serious: No
  Sender: FDA-Public Use
  Company Number: US-GLAXOSMITHKLINE-A0585129A

PATIENT
  Age: 80 Year
  Sex: Female

DRUGS (6)
  1. AVANDIA [Suspect]
     Dosage: 2MG PER DAY
     Route: 048
  2. GLUCOVANCE [Concomitant]
  3. NORVASC [Concomitant]
  4. AVAPRO [Concomitant]
  5. BETAXOLOL [Concomitant]
  6. LEVOTHROID [Concomitant]

REACTIONS (2)
  - FATIGUE [None]
  - HUNGER [None]
